FAERS Safety Report 5306927-0 (Version None)
Quarter: 2007Q2

REPORT INFORMATION
  Report Type: 
  Country: None (occurrence: None)
  Receive Date: 20070425
  Receipt Date: 20070424
  Transmission Date: 20071010
  Serious: Yes (Other)
  Sender: FDA-Public Use
  Company Number: TR-BRISTOL-MYERS SQUIBB COMPANY-13758289

PATIENT
  Age: 20 Year
  Sex: Female

DRUGS (3)
  1. ABILIFY [Suspect]
     Indication: BIPOLAR DISORDER
     Dates: start: 20070321, end: 20070402
  2. DEPAKENE [Concomitant]
  3. LITHURIL [Concomitant]

REACTIONS (1)
  - MYOPIA [None]
